FAERS Safety Report 22536612 (Version 1)
Quarter: 2023Q2

REPORT INFORMATION
  Report Type: Report from Study
  Country: US (occurrence: US)
  Receive Date: 20230608
  Receipt Date: 20230608
  Transmission Date: 20230722
  Serious: Yes (Other)
  Sender: FDA-Public Use
  Company Number: US-SUN PHARMACEUTICAL INDUSTRIES LTD-2023R1-393399

PATIENT
  Age: 32 Year
  Sex: Female

DRUGS (4)
  1. DOXYCYCLINE [Suspect]
     Active Substance: DOXYCYCLINE
     Indication: Graft versus host disease in eye
     Dosage: 50 MILLIGRAM, QD
     Route: 065
  2. ERYTHROMYCIN [Suspect]
     Active Substance: ERYTHROMYCIN
     Indication: Graft versus host disease in eye
     Dosage: UNK, QD
     Route: 065
  3. HEPARIN [Suspect]
     Active Substance: HEPARIN SODIUM
     Indication: Graft versus host disease in eye
     Dosage: 100 IU/ML
     Route: 047
  4. METHYLPREDNISOLONE [Concomitant]
     Active Substance: METHYLPREDNISOLONE
     Indication: Graft versus host disease in eye
     Dosage: 1PERCENT  SIX TIMES A DAY
     Route: 065

REACTIONS (1)
  - Therapy non-responder [Unknown]
